FAERS Safety Report 6215691-2 (Version None)
Quarter: 2009Q2

REPORT INFORMATION
  Report Type: 
  Country: None (occurrence: None)
  Receive Date: 20090603
  Receipt Date: 20090603
  Transmission Date: 20091009
  Serious: Yes (Other)
  Sender: FDA-Public Use
  Company Number: None

PATIENT
  Age: 9 Year
  Sex: Female
  Weight: 41.2773 kg

DRUGS (1)
  1. LORAZEPAM [Suspect]
     Indication: TORTICOLLIS
     Dosage: 1 ML EVERY 6 HOURS
     Dates: start: 20090429

REACTIONS (16)
  - ABDOMINAL DISCOMFORT [None]
  - ABNORMAL BEHAVIOUR [None]
  - AMNESIA [None]
  - ASTHENIA [None]
  - BALANCE DISORDER [None]
  - CLUMSINESS [None]
  - CONFUSIONAL STATE [None]
  - CRYING [None]
  - DEPRESSION [None]
  - DIZZINESS [None]
  - GAIT DISTURBANCE [None]
  - HEADACHE [None]
  - MOOD ALTERED [None]
  - PERSONALITY CHANGE [None]
  - SOMNOLENCE [None]
  - SUICIDAL IDEATION [None]
